FAERS Safety Report 11696390 (Version 2)
Quarter: 2015Q4

REPORT INFORMATION
  Report Type: Spontaneous
  Country: SE (occurrence: SE)
  Receive Date: 20151104
  Receipt Date: 20151124
  Transmission Date: 20160304
  Serious: Yes (Other)
  Sender: FDA-Public Use
  Company Number: SE-BIOGENIDEC-2015BI143030

PATIENT
  Age: 50 Year
  Sex: Female

DRUGS (5)
  1. TOILAX [Concomitant]
     Active Substance: BISACODYL
     Indication: BOWEL MOVEMENT IRREGULARITY
  2. FLUNITRAZEPAM [Concomitant]
     Active Substance: FLUNITRAZEPAM
     Indication: SLEEP DISORDER
  3. LAXOBERAL [Concomitant]
     Active Substance: SODIUM PICOSULFATE
     Indication: BOWEL MOVEMENT IRREGULARITY
     Route: 048
  4. TYSABRI [Suspect]
     Active Substance: NATALIZUMAB
     Indication: MULTIPLE SCLEROSIS
     Route: 042
     Dates: start: 20071217, end: 20130620
  5. IMOVANE [Concomitant]
     Active Substance: ZOPICLONE
     Indication: SLEEP DISORDER

REACTIONS (2)
  - Multiple sclerosis [Unknown]
  - Invasive ductal breast carcinoma [Unknown]

NARRATIVE: CASE EVENT DATE: 201305
